FAERS Safety Report 16172436 (Version 1)
Quarter: 2019Q2

REPORT INFORMATION
  Report Type: Spontaneous
  Country: US (occurrence: US)
  Receive Date: 20190409
  Receipt Date: 20190409
  Transmission Date: 20190711
  Serious: Yes (Other)
  Sender: FDA-Public Use
  Company Number: US-AUROBINDO-AUR-APL-2019-010633

PATIENT

DRUGS (1)
  1. ZOLEDRONIC ACID INJECTION [Suspect]
     Active Substance: ZOLEDRONIC ACID
     Indication: PRODUCT USED FOR UNKNOWN INDICATION
     Dosage: UNK
     Route: 065

REACTIONS (9)
  - Parophthalmia [Recovered/Resolved]
  - Eye pain [Recovered/Resolved]
  - Periorbital swelling [Recovered/Resolved]
  - Conjunctival oedema [Recovered/Resolved]
  - Vitreous detachment [Recovered/Resolved]
  - Lacrimation increased [Recovered/Resolved]
  - Erythema [Recovered/Resolved]
  - Eyelid ptosis [Recovered/Resolved]
  - Eyelid oedema [Recovered/Resolved]
